FAERS Safety Report 9216858 (Version 2)
Quarter: 2013Q2

REPORT INFORMATION
  Report Type: Spontaneous
  Country: DE (occurrence: DE)
  Receive Date: 20130408
  Receipt Date: 20130510
  Transmission Date: 20140414
  Serious: Yes (Other)
  Sender: FDA-Public Use
  Company Number: DE-PFIZER INC-2013106561

PATIENT
  Age: 66 Year
  Sex: Female
  Weight: 74 kg

DRUGS (6)
  1. XALATAN [Suspect]
     Indication: GLAUCOMA
     Dosage: 1 DF IN EACH EYE, 1X/DAY (AT NIGHT)
     Route: 047
     Dates: start: 20130118, end: 201303
  2. COSOPT [Interacting]
     Indication: GLAUCOMA
     Dosage: 2 DF, 1X/DAY
     Dates: start: 200901
  3. PRESOMEN [Concomitant]
  4. LISINOPRIL [Concomitant]
  5. HCT [Concomitant]
  6. ASS [Concomitant]

REACTIONS (8)
  - Drug interaction [Recovered/Resolved]
  - Cardiac flutter [Recovered/Resolved]
  - Chest discomfort [Recovered/Resolved]
  - Restlessness [Recovered/Resolved]
  - Sleep disorder [Recovered/Resolved]
  - Headache [Recovered/Resolved]
  - Pain in extremity [Recovered/Resolved]
  - Arthropathy [Recovered/Resolved]
